FAERS Safety Report 17257137 (Version 1)
Quarter: 2020Q1

REPORT INFORMATION
  Report Type: Spontaneous
  Country: GB (occurrence: GB)
  Receive Date: 20200110
  Receipt Date: 20200110
  Transmission Date: 20200409
  Serious: Yes (Hospitalization)
  Sender: FDA-Public Use
  Company Number: GB-009507513-2001GBR002169

PATIENT
  Age: 78 Year
  Sex: Male

DRUGS (11)
  1. SODIUM BICARBONATE. [Concomitant]
     Active Substance: SODIUM BICARBONATE
     Dosage: 6 GTT DROPS (DROP (1/12 MILLILITRE)), QD
     Route: 061
     Dates: start: 20191030
  2. DEXAMETHASONE. [Concomitant]
     Active Substance: DEXAMETHASONE
     Dosage: 6 MILLIGRAM, IN THE MORNING
     Route: 048
  3. LANSOPRAZOLE. [Concomitant]
     Active Substance: LANSOPRAZOLE
     Dosage: 30 MILLIGRAM, IN THE MORNING
  4. SITAGLIPTIN PHOSPHATE [Suspect]
     Active Substance: SITAGLIPTIN PHOSPHATE
     Dosage: 100 MILLIGRAM, IN THE MORNING
     Route: 048
  5. INSULIN HUMAN, ISOPHANE [Suspect]
     Active Substance: INSULIN HUMAN
     Dosage: 92 INTERNATIONAL UNIT, QD; MORNING AND NIGHT (100 UNITS/ML)
     Route: 058
  6. PIOGLITAZONE. [Suspect]
     Active Substance: PIOGLITAZONE
     Dosage: 45 MILLIGRAM, IN THE MORNING
     Route: 048
  7. METFORMIN [Suspect]
     Active Substance: METFORMIN HYDROCHLORIDE
     Dosage: 500 MILLIGRAM, QD
     Route: 048
  8. CARBOHYDRATES (UNSPECIFIED) (+) FAT (UNSPECIFIED) (+) MINERALS (UNSPEC [Concomitant]
     Active Substance: DIETARY SUPPLEMENT
     Dosage: 125 MILLILITER, QD
     Route: 048
  9. FUROSEMIDE. [Concomitant]
     Active Substance: FUROSEMIDE
     Dosage: 20 MILLIGRAM, ONCE DAILY AS NECESSARY; PRN - ONLY USES WHEN LEGS ARE SWOLLEN
     Route: 048
     Dates: start: 20191023
  10. GLICLAZIDE [Suspect]
     Active Substance: GLICLAZIDE
     Dosage: 40 MILLIGRAM, QD (AT TEATIME)
     Route: 048
  11. LOPERAMIDE [Concomitant]
     Active Substance: LOPERAMIDE
     Dosage: 2 MG AS NECESSARY
     Route: 048

REACTIONS (2)
  - Hypoglycaemia [Recovered/Resolved]
  - Pneumonia [Unknown]

NARRATIVE: CASE EVENT DATE: 20191110
